FAERS Safety Report 20578679 (Version 2)
Quarter: 2022Q1

REPORT INFORMATION
  Report Type: Spontaneous
  Country: US (occurrence: US)
  Receive Date: 20220310
  Receipt Date: 20220330
  Transmission Date: 20220423
  Serious: Yes (Death, Other)
  Sender: FDA-Public Use
  Company Number: US-009507513-2202USA000967

PATIENT
  Age: 62 Year
  Sex: Male
  Weight: 85.986 kg

DRUGS (10)
  1. SINGULAIR [Suspect]
     Active Substance: MONTELUKAST SODIUM
     Dosage: UNK
     Route: 048
  2. PROVENTIL [Suspect]
     Active Substance: ALBUTEROL
     Dosage: UNK
  3. KEYTRUDA [Suspect]
     Active Substance: PEMBROLIZUMAB
     Indication: Prostate cancer
     Dosage: SINGLE DOSE OF PEMBROLIZUMAB (KEYTRUDA) 200MG
     Route: 042
     Dates: start: 20211223
  4. DILAUDID [Suspect]
     Active Substance: HYDROMORPHONE HYDROCHLORIDE
     Dosage: UNK
  5. FENTANYL [Suspect]
     Active Substance: FENTANYL
     Dosage: UNK
  6. EFFEXOR [Suspect]
     Active Substance: VENLAFAXINE HYDROCHLORIDE
     Dosage: UNK
  7. XANAX [Suspect]
     Active Substance: ALPRAZOLAM
     Dosage: UNK
  8. ZYPREXA [Suspect]
     Active Substance: OLANZAPINE
     Dosage: UNK
  9. SYMBICORT [Suspect]
     Active Substance: BUDESONIDE\FORMOTEROL FUMARATE DIHYDRATE
     Dosage: UNK
  10. OMEPRAZOLE [Suspect]
     Active Substance: OMEPRAZOLE
     Dosage: UNK

REACTIONS (3)
  - Death [Fatal]
  - Prostatic specific antigen abnormal [Unknown]
  - Adverse event [Unknown]

NARRATIVE: CASE EVENT DATE: 20220111
